FAERS Safety Report 19276676 (Version 2)
Quarter: 2021Q3

REPORT INFORMATION
  Report Type: Spontaneous
  Country: US (occurrence: US)
  Receive Date: 20210519
  Receipt Date: 20210716
  Transmission Date: 20211014
  Serious: No
  Sender: FDA-Public Use
  Company Number: US-ELI_LILLY_AND_COMPANY-US202105007825

PATIENT
  Age: 79 Year
  Sex: Female

DRUGS (2)
  1. BAMLANIVIMAB. [Suspect]
     Active Substance: BAMLANIVIMAB
     Indication: COVID-19
     Dosage: 700 MG, SINGLE
     Route: 042
  2. ETESEVIMAB. [Suspect]
     Active Substance: ETESEVIMAB
     Indication: COVID-19
     Dosage: 1400 MG, SINGLE
     Route: 042

REACTIONS (10)
  - Nasal discomfort [Recovered/Resolved]
  - Thirst [Recovered/Resolved]
  - Back pain [Unknown]
  - Feeling abnormal [Recovered/Resolved]
  - Musculoskeletal chest pain [Recovered/Resolved]
  - Eye irritation [Recovered/Resolved]
  - Fibrin D dimer increased [Recovering/Resolving]
  - Asthenia [Unknown]
  - Rhinorrhoea [Recovered/Resolved]
  - Confusional state [Not Recovered/Not Resolved]

NARRATIVE: CASE EVENT DATE: 20210401
